FAERS Safety Report 17184842 (Version 1)
Quarter: 2019Q4

REPORT INFORMATION
  Report Type: Spontaneous
  Country: US (occurrence: US)
  Receive Date: 20191220
  Receipt Date: 20191220
  Transmission Date: 20200122
  Serious: Yes (Other)
  Sender: FDA-Public Use
  Company Number: US-ELI_LILLY_AND_COMPANY-US201912008357

PATIENT
  Age: 24 Year
  Sex: Male

DRUGS (1)
  1. EMGALITY [Suspect]
     Active Substance: GALCANEZUMAB-GNLM
     Indication: MIGRAINE
     Dosage: 120 MG, MONTHLY (1/M)
     Route: 058
     Dates: start: 20190121, end: 20190321

REACTIONS (13)
  - Memory impairment [Unknown]
  - Myalgia [Unknown]
  - Muscle atrophy [Unknown]
  - Drug ineffective [Unknown]
  - Muscle twitching [Recovering/Resolving]
  - Back pain [Unknown]
  - Sleep disorder [Unknown]
  - Arthralgia [Unknown]
  - Weight decreased [Unknown]
  - Visual impairment [Unknown]
  - Decreased appetite [Unknown]
  - Injection site pain [Unknown]
  - Injection site erythema [Unknown]
